FAERS Safety Report 12637649 (Version 1)
Quarter: 2016Q3

REPORT INFORMATION
  Report Type: Spontaneous
  Country: US (occurrence: US)
  Receive Date: 20160809
  Receipt Date: 20160809
  Transmission Date: 20161109
  Serious: No
  Sender: FDA-Public Use
  Company Number: US-ABBVIE-16P-163-1670532-00

PATIENT
  Sex: Male

DRUGS (5)
  1. DEPAKOTE [Suspect]
     Active Substance: DIVALPROEX SODIUM
     Indication: DEPRESSION
     Dosage: SUPPOSED TO TAKE TWO BUT HAD ONLY BEEN TAKING ONE
     Route: 048
  2. ADVIL [Suspect]
     Active Substance: IBUPROFEN
     Indication: MIGRAINE
     Route: 048
  3. ASPIRIN. [Suspect]
     Active Substance: ASPIRIN
     Indication: PRODUCT USED FOR UNKNOWN INDICATION
     Dosage: LOW LEVEL LIKE 6 OF THEM
     Route: 048
  4. SEROQUEL [Concomitant]
     Active Substance: QUETIAPINE FUMARATE
     Indication: BIPOLAR DISORDER
     Dosage: 600MG A DAY, IN EVENING
     Route: 048
  5. BUTALBIT/APAP/CAFFEINE PLUS [Suspect]
     Active Substance: ACETAMINOPHEN\BUTALBITAL\CAFFEINE
     Indication: MIGRAINE
     Route: 048

REACTIONS (8)
  - Panic attack [Recovered/Resolved]
  - Migraine [Recovered/Resolved]
  - Overdose [Unknown]
  - Incorrect dose administered [Unknown]
  - Somnolence [Unknown]
  - Dizziness [Unknown]
  - General symptom [Unknown]
  - Pain in jaw [Unknown]
